FAERS Safety Report 23096594 (Version 1)
Quarter: 2023Q4

REPORT INFORMATION
  Report Type: Spontaneous
  Country: US (occurrence: None)
  Receive Date: 20231022
  Receipt Date: 20231022
  Transmission Date: 20240110
  Serious: No
  Sender: FDA-Public Use
  Company Number: None

PATIENT
  Age: 64 Year
  Sex: Female
  Weight: 47.7 kg

DRUGS (5)
  1. VRAYLAR [Suspect]
     Active Substance: CARIPRAZINE
     Indication: Bipolar disorder
  2. VITAMINS [Concomitant]
     Active Substance: VITAMINS
  3. MINERALS [Concomitant]
     Active Substance: MINERALS
  4. BILBERRY [Concomitant]
     Active Substance: BILBERRY
  5. LUTEIN [Concomitant]
     Active Substance: LUTEIN

REACTIONS (6)
  - Asthenia [None]
  - Fatigue [None]
  - Blood glucose abnormal [None]
  - Palpitations [None]
  - Sleep disorder [None]
  - Therapy interrupted [None]

NARRATIVE: CASE EVENT DATE: 20230627
